FAERS Safety Report 21497721 (Version 1)
Quarter: 2022Q4

REPORT INFORMATION
  Report Type: Report from Study
  Country: US (occurrence: US)
  Receive Date: 20221024
  Receipt Date: 20221024
  Transmission Date: 20230113
  Serious: Yes (Other)
  Sender: FDA-Public Use
  Company Number: US-ABBVIE-22K-163-4490778-00

PATIENT
  Sex: Female

DRUGS (6)
  1. HUMIRA [Suspect]
     Active Substance: ADALIMUMAB
     Indication: Hidradenitis
     Dosage: DAY 1
     Route: 058
     Dates: start: 202109, end: 202109
  2. HUMIRA [Suspect]
     Active Substance: ADALIMUMAB
     Dosage: DAY 15?STRENGTH 40 MILLIGRAM
     Route: 058
     Dates: start: 2021, end: 2021
  3. HUMIRA [Suspect]
     Active Substance: ADALIMUMAB
     Dosage: DAY 29
     Route: 058
     Dates: start: 2021, end: 202205
  4. HUMIRA [Suspect]
     Active Substance: ADALIMUMAB
     Dosage: LAST ADMIN DATE- 2022
     Route: 058
     Dates: start: 20220710
  5. HUMIRA [Suspect]
     Active Substance: ADALIMUMAB
     Route: 058
     Dates: start: 202110
  6. HUMIRA [Suspect]
     Active Substance: ADALIMUMAB
     Route: 058
     Dates: start: 2022

REACTIONS (19)
  - Bone graft [Unknown]
  - Injection site erythema [Unknown]
  - Pruritus [Unknown]
  - Dental implantation [Unknown]
  - Impaired work ability [Unknown]
  - Anal ulcer [Recovering/Resolving]
  - Mouth ulceration [Recovering/Resolving]
  - Injection site swelling [Unknown]
  - Headache [Unknown]
  - Tongue disorder [Recovering/Resolving]
  - Pruritus [Recovering/Resolving]
  - Impaired work ability [Unknown]
  - Tinnitus [Not Recovered/Not Resolved]
  - Pain of skin [Unknown]
  - Stress [Unknown]
  - Unevaluable event [Unknown]
  - Hot flush [Unknown]
  - Hidradenitis [Unknown]
  - Pain [Recovering/Resolving]

NARRATIVE: CASE EVENT DATE: 20220101
